FAERS Safety Report 13898732 (Version 1)
Quarter: 2017Q3

REPORT INFORMATION
  Report Type: Spontaneous
  Country: US (occurrence: None)
  Receive Date: 20170817
  Receipt Date: 20170817
  Transmission Date: 20171127
  Serious: Yes (Death)
  Sender: FDA-Public Use
  Company Number: None

PATIENT
  Age: 81 Year
  Sex: Male
  Weight: 82.1 kg

DRUGS (3)
  1. CLOPIDOGREL [Suspect]
     Active Substance: CLOPIDOGREL BISULFATE
     Indication: AORTIC ANEURYSM
     Route: 048
     Dates: start: 20170406, end: 20170616
  2. CLOPIDOGREL [Suspect]
     Active Substance: CLOPIDOGREL BISULFATE
     Indication: ARTERIAL ANEURYSM REPAIR
     Route: 048
     Dates: start: 20170406, end: 20170616
  3. WARFARIN [Suspect]
     Active Substance: WARFARIN
     Route: 048
     Dates: start: 20160901, end: 20170616

REACTIONS (6)
  - Confusional state [None]
  - Head injury [None]
  - Internal haemorrhage [None]
  - Mental status changes [None]
  - Fall [None]
  - Subdural haematoma [None]

NARRATIVE: CASE EVENT DATE: 20170616
